FAERS Safety Report 7307521-2 (Version None)
Quarter: 2011Q1

REPORT INFORMATION
  Report Type: 
  Country: None (occurrence: None)
  Receive Date: 20110211
  Receipt Date: 20110127
  Transmission Date: 20110831
  Serious: Yes (Other)
  Sender: FDA-Public Use
  Company Number: 026740

PATIENT
  Age: 49 Year
  Sex: Female

DRUGS (5)
  1. LACOSAMIDE [Suspect]
     Indication: STATUS EPILEPTICUS
     Dosage: (100 MG 1X/12 HOURS, 200 MG LOADING DOSE INTRAVENOUS (NOT OTHERWISE SPECIFIED))
     Route: 042
  2. LEVETIRACETAM [Suspect]
  3. KETAMINE HCL [Concomitant]
  4. PHENYTOIN [Concomitant]
  5. VALPROIC ACID [Concomitant]

REACTIONS (2)
  - ANGIOEDEMA [None]
  - OFF LABEL USE [None]
